FAERS Safety Report 16635060 (Version 4)
Quarter: 2019Q3

REPORT INFORMATION
  Report Type: Spontaneous
  Country: US (occurrence: US)
  Receive Date: 20190726
  Receipt Date: 20190919
  Transmission Date: 20191004
  Serious: Yes (Death, Life-Threatening, Hospitalization, Other)
  Sender: FDA-Public Use
  Company Number: US-009507513-1907USA013680

PATIENT
  Age: 72 Year
  Sex: Male
  Weight: 63.72 kg

DRUGS (4)
  1. CARBOPLATIN. [Concomitant]
     Active Substance: CARBOPLATIN
     Indication: NON-SMALL CELL LUNG CANCER
     Dosage: 417 NANOGRAM X 7
     Route: 042
     Dates: start: 20190620, end: 20190620
  2. KEYTRUDA [Suspect]
     Active Substance: PEMBROLIZUMAB
     Indication: NON-SMALL CELL LUNG CANCER
  3. KEYTRUDA [Suspect]
     Active Substance: PEMBROLIZUMAB
     Indication: LUNG CARCINOMA CELL TYPE UNSPECIFIED STAGE IV
     Dosage: 200 MILLIGRAM, Q3W
     Route: 042
     Dates: start: 20190620, end: 2019
  4. PEMETREXED DISODIUM [Concomitant]
     Active Substance: PEMETREXED DISODIUM
     Indication: NON-SMALL CELL LUNG CANCER
     Dosage: 430 NANOGRAM X 7
     Route: 042
     Dates: start: 20190620, end: 20190620

REACTIONS (9)
  - Acute left ventricular failure [Fatal]
  - Dyspnoea [Unknown]
  - Death [Fatal]
  - Heart rate irregular [Unknown]
  - Myocardial necrosis marker increased [Unknown]
  - Cardiac dysfunction [Unknown]
  - Hydrothorax [Unknown]
  - Diarrhoea [Unknown]
  - Myocardial infarction [Unknown]

NARRATIVE: CASE EVENT DATE: 20190716
